FAERS Safety Report 7229593-6 (Version None)
Quarter: 2011Q1

REPORT INFORMATION
  Report Type: 
  Country: None (occurrence: None)
  Receive Date: 20110117
  Receipt Date: 20101119
  Transmission Date: 20110831
  Serious: No
  Sender: FDA-Public Use
  Company Number: US-TYCO HEALTHCARE/MALLINCKRODT-T201002272

PATIENT
  Sex: Male

DRUGS (8)
  1. CENTRUM SILVER                     /01292501/ [Concomitant]
  2. MSM [Concomitant]
  3. OPTIRAY 350 [Suspect]
     Indication: COMPUTERISED TOMOGRAM
     Dosage: 72 ML, SINGLE
     Route: 042
     Dates: start: 20101125, end: 20101125
  4. GLUCOSAMINE [Concomitant]
  5. MEDROL [Concomitant]
     Dosage: 32 MG, SINGLE, 2 HR PRIOR TO EXAM
     Dates: end: 20101025
  6. ASPIRIN [Concomitant]
  7. MEDROL [Concomitant]
     Indication: PREMEDICATION
     Dosage: 32 MG, SINGLE 12 HR PRIOR TO SCAN
  8. FISH OIL [Concomitant]

REACTIONS (3)
  - RASH MACULAR [None]
  - DYSPHONIA [None]
  - PRURITUS [None]
